FAERS Safety Report 13379555 (Version 2)
Quarter: 2017Q2

REPORT INFORMATION
  Report Type: Spontaneous
  Country: FR (occurrence: FR)
  Receive Date: 20170328
  Receipt Date: 20170418
  Transmission Date: 20170830
  Serious: Yes (Hospitalization, Disabling, Congenital Anomaly)
  Sender: FDA-Public Use
  Company Number: FR-ABBVIE-17P-056-1923595-00

PATIENT
  Sex: Male

DRUGS (1)
  1. DEPAKINE [Suspect]
     Active Substance: VALPROATE SODIUM
     Indication: MATERNAL EXPOSURE TIMING UNSPECIFIED
     Route: 064

REACTIONS (19)
  - Scaphocephaly [Recovered/Resolved]
  - Cryptorchism [Unknown]
  - Visual impairment [Unknown]
  - Abnormal behaviour [Unknown]
  - Dyslexia [Unknown]
  - Inguinal hernia [Unknown]
  - Heart disease congenital [Unknown]
  - Ventricular septal defect [Recovered/Resolved]
  - Pectus excavatum [Unknown]
  - Hydrocele [Unknown]
  - Learning disorder [Unknown]
  - Arnold-Chiari malformation [Unknown]
  - Speech disorder developmental [Recovering/Resolving]
  - Developmental delay [Unknown]
  - Enuresis [Unknown]
  - Ill-defined disorder [Unknown]
  - Foetal exposure during pregnancy [Unknown]
  - Anxiety [Unknown]
  - Foetal growth restriction [Unknown]

NARRATIVE: CASE EVENT DATE: 20000625
